FAERS Safety Report 5126566-4 (Version None)
Quarter: 2006Q4

REPORT INFORMATION
  Report Type: 
  Country: None (occurrence: None)
  Receive Date: 20061012
  Receipt Date: 20061012
  Transmission Date: 20070319
  Serious: Yes (Life-Threatening)
  Sender: FDA-Public Use
  Company Number: None

PATIENT
  Sex: Female
  Weight: 63 kg

DRUGS (2)
  1. MOXIFLOXACIN HCL [Suspect]
     Indication: PNEUMONIA ASPIRATION
     Dosage: 400 MG   DAILY   IV BOLUS
     Route: 040
     Dates: start: 20060911, end: 20060911
  2. NEXIUM [Concomitant]

REACTIONS (1)
  - ELECTROCARDIOGRAM QT CORRECTED INTERVAL PROLONGED [None]
